FAERS Safety Report 7380596-0 (Version None)
Quarter: 2011Q1

REPORT INFORMATION
  Report Type: 
  Country: None (occurrence: None)
  Receive Date: 20110329
  Receipt Date: 20110316
  Transmission Date: 20110831
  Serious: Yes (Hospitalization)
  Sender: FDA-Public Use
  Company Number: US-ACTELION-A-US2011-46504

PATIENT

DRUGS (1)
  1. TRACLEER [Suspect]
     Indication: PULMONARY ARTERIAL HYPERTENSION
     Dosage: UNK
     Route: 048

REACTIONS (6)
  - OESOPHAGEAL HAEMORRHAGE [None]
  - TRANSFUSION [None]
  - ASTHENIA [None]
  - DYSPNOEA [None]
  - RED BLOOD CELL COUNT DECREASED [None]
  - VOMITING [None]
